FAERS Safety Report 5563306-9 (Version None)
Quarter: 2007Q4

REPORT INFORMATION
  Report Type: 
  Country: None (occurrence: None)
  Receive Date: 20071217
  Receipt Date: 20071204
  Transmission Date: 20080405
  Serious: Yes (Other)
  Sender: FDA-Public Use
  Company Number: SG-AMGEN-US255985

PATIENT
  Sex: Female
  Weight: 50 kg

DRUGS (3)
  1. ENBREL [Suspect]
     Indication: RHEUMATOID ARTHRITIS
     Route: 058
     Dates: start: 20070501
  2. PREDNISOLONE [Concomitant]
     Indication: RHEUMATOID ARTHRITIS
     Dosage: LOW DOSE DAILY
     Route: 065
     Dates: start: 20000101
  3. PREDNISOLONE [Concomitant]
     Indication: PEMPHIGUS

REACTIONS (1)
  - PREMATURE MENOPAUSE [None]
